FAERS Safety Report 20780172 (Version 1)
Quarter: 2022Q2

REPORT INFORMATION
  Report Type: Report from Study
  Country: US (occurrence: US)
  Receive Date: 20220503
  Receipt Date: 20220503
  Transmission Date: 20220720
  Serious: Yes (Hospitalization)
  Sender: FDA-Public Use
  Company Number: US-ABBVIE-22K-163-4377044-00

PATIENT
  Age: 55 Year
  Sex: Female

DRUGS (1)
  1. HUMIRA [Suspect]
     Active Substance: ADALIMUMAB
     Indication: Crohn^s disease
     Route: 058
     Dates: start: 20210702

REACTIONS (11)
  - Small intestinal obstruction [Unknown]
  - Abdominal adhesions [Unknown]
  - Frequent bowel movements [Unknown]
  - Flatulence [Unknown]
  - Fatigue [Unknown]
  - Menopause [Unknown]
  - Stress [Unknown]
  - Anxiety [Unknown]
  - Blood potassium decreased [Unknown]
  - Vomiting [Recovered/Resolved]
  - Diarrhoea [Unknown]

NARRATIVE: CASE EVENT DATE: 20220301
